FAERS Safety Report 8822855 (Version 2)
Quarter: 2014Q3

REPORT INFORMATION
  Report Type: Report from Study
  Country: US (occurrence: US)
  Receive Date: 20121003
  Receipt Date: 20140826
  Transmission Date: 20150326
  Serious: Yes (Death, Life-Threatening, Other)
  Sender: FDA-Public Use
  Company Number: US-ROCHE-1129973

PATIENT
  Age: 38 Year
  Sex: Male
  Weight: 55.3 kg

DRUGS (18)
  1. RITUXAN [Suspect]
     Active Substance: RITUXIMAB
     Indication: LYMPHOMA
  2. VINCRISTINE SULFATE. [Concomitant]
     Active Substance: VINCRISTINE SULFATE
     Route: 040
  3. NEULASTA [Concomitant]
     Active Substance: PEGFILGRASTIM
     Route: 065
  4. IMODIUM A-D [Concomitant]
     Active Substance: LOPERAMIDE HYDROCHLORIDE
     Dosage: 1MG/7.5ML TAKE 5 ML PO PRN
     Route: 048
  5. HEXACHLOROPHENE [Concomitant]
     Active Substance: HEXACHLOROPHENE
  6. PALONOSETRON [Concomitant]
     Active Substance: PALONOSETRON
     Route: 042
  7. ZOFRAN [Concomitant]
     Active Substance: ONDANSETRON HYDROCHLORIDE
     Route: 048
  8. RITUXAN [Suspect]
     Active Substance: RITUXIMAB
     Indication: NON-HODGKIN^S LYMPHOMA
  9. CECLOR [Concomitant]
     Active Substance: CEFACLOR
     Route: 048
  10. RITUXAN [Suspect]
     Active Substance: RITUXIMAB
     Indication: LYMPHOMA
     Route: 041
  11. ISOPROPYL ALCOHOL. [Concomitant]
     Active Substance: ISOPROPYL ALCOHOL
  12. VINCRISTINE SULFATE. [Concomitant]
     Active Substance: VINCRISTINE SULFATE
     Route: 040
  13. CYCLOPHOSPHAMIDE. [Concomitant]
     Active Substance: CYCLOPHOSPHAMIDE
     Route: 065
  14. CYCLOPHOSPHAMIDE. [Concomitant]
     Active Substance: CYCLOPHOSPHAMIDE
     Route: 041
  15. DOXORUBICIN [Concomitant]
     Active Substance: DOXORUBICIN
     Route: 065
  16. DOXORUBICIN [Concomitant]
     Active Substance: DOXORUBICIN
     Route: 040
  17. DEXAMETHASONE SODIUM PHOSPHATE [Concomitant]
     Active Substance: DEXAMETHASONE SODIUM PHOSPHATE
     Route: 042
  18. ALBUTEROL. [Concomitant]
     Active Substance: ALBUTEROL
     Route: 048

REACTIONS (18)
  - Death [Fatal]
  - Gastrointestinal haemorrhage [Unknown]
  - Rash [Unknown]
  - Empyema [Unknown]
  - Sepsis [Unknown]
  - Dyspnoea [Unknown]
  - Oedema peripheral [Unknown]
  - Agitation [Unknown]
  - Deep vein thrombosis [Unknown]
  - Breakthrough pain [Unknown]
  - Pallor [Unknown]
  - Breath sounds abnormal [Unknown]
  - Confusional state [Unknown]
  - Malaise [Unknown]
  - Klebsiella infection [Unknown]
  - Arterial injury [Unknown]
  - Febrile neutropenia [Unknown]
  - Insomnia [Unknown]

NARRATIVE: CASE EVENT DATE: 20110813
